FAERS Safety Report 4266864-X (Version None)
Quarter: 2004Q1

REPORT INFORMATION
  Report Type: 
  Country: None (occurrence: None)
  Receive Date: 20040108
  Receipt Date: 20031229
  Transmission Date: 20041129
  Serious: Yes (Hospitalization)
  Sender: FDA-Public Use
  Company Number: WAES 0401USA00040

PATIENT
  Age: 39 Year
  Sex: Male

DRUGS (2)
  1. DARVOCET-N 100 [Suspect]
  2. INDOCIN [Suspect]
     Indication: GOUT
     Route: 048
     Dates: start: 19990101

REACTIONS (3)
  - ANXIETY [None]
  - HYPERHIDROSIS [None]
  - PALPITATIONS [None]
